FAERS Safety Report 21978715 (Version 1)
Quarter: 2023Q1

REPORT INFORMATION
  Report Type: Spontaneous
  Country: US (occurrence: None)
  Receive Date: 20230209
  Receipt Date: 20230209
  Transmission Date: 20230418
  Serious: Yes (Other)
  Sender: FDA-Public Use
  Company Number: None

PATIENT
  Age: 64 Year
  Sex: Male

DRUGS (1)
  1. STELARA [Suspect]
     Active Substance: USTEKINUMAB

REACTIONS (3)
  - Sepsis [None]
  - Hip arthroplasty [None]
  - Knee arthroplasty [None]

NARRATIVE: CASE EVENT DATE: 20230207
